FAERS Safety Report 13327631 (Version 1)
Quarter: 2017Q1

REPORT INFORMATION
  Report Type: Spontaneous
  Country: US (occurrence: US)
  Receive Date: 20170313
  Receipt Date: 20170313
  Transmission Date: 20170428
  Serious: No
  Sender: FDA-Public Use
  Company Number: US-JNJFOC-20170107923

PATIENT
  Sex: Male
  Weight: 80 kg

DRUGS (3)
  1. MENS ROGAINE EXTRA STRENGTH [Suspect]
     Active Substance: MINOXIDIL
     Route: 061
  2. LOPERAMIDE [Concomitant]
     Active Substance: LOPERAMIDE
     Indication: SEASONAL ALLERGY
     Dosage: 1 EVERY 4 DAYS FOR 1 YEAR
     Route: 065
  3. MENS ROGAINE EXTRA STRENGTH [Suspect]
     Active Substance: MINOXIDIL
     Indication: PRODUCT USED FOR UNKNOWN INDICATION
     Dosage: SLIGHTLY MORE THAN HALF A CAP
     Route: 061

REACTIONS (2)
  - Drug ineffective [Unknown]
  - Overdose [Unknown]
